FAERS Safety Report 18523637 (Version 1)
Quarter: 2020Q4

REPORT INFORMATION
  Report Type: Spontaneous
  Country: CN (occurrence: CN)
  Receive Date: 20201119
  Receipt Date: 20201119
  Transmission Date: 20210114
  Serious: Yes (Hospitalization)
  Sender: FDA-Public Use
  Company Number: CN-GILEAD-2020-0504783

PATIENT
  Age: 49 Year
  Sex: Female
  Weight: 50 kg

DRUGS (8)
  1. LAMIVUDINE. [Concomitant]
     Active Substance: LAMIVUDINE
     Indication: ACQUIRED IMMUNODEFICIENCY SYNDROME
     Dosage: 300 MG, QD
     Route: 048
     Dates: start: 20190507
  2. ISENTRESS [Suspect]
     Active Substance: RALTEGRAVIR POTASSIUM
     Indication: HIV-ASSOCIATED NEUROCOGNITIVE DISORDER
  3. EFAVIRENZ. [Concomitant]
     Active Substance: EFAVIRENZ
     Dosage: 600 MG, QD
     Route: 048
     Dates: start: 20190507, end: 20200602
  4. GLYCYRRHIZIN [GLYCYRRHIZIC ACID] [Concomitant]
     Active Substance: GLYCYRRHIZIN
     Dosage: UNK
     Dates: start: 202005
  5. ISENTRESS [Suspect]
     Active Substance: RALTEGRAVIR POTASSIUM
     Indication: HIV INFECTION
     Dosage: 0.4 MG, BID
     Route: 048
     Dates: start: 20200602, end: 20200623
  6. GENVOYA [Suspect]
     Active Substance: COBICISTAT\ELVITEGRAVIR\EMTRICITABINE\TENOFOVIR ALAFENAMIDE FUMARATE
     Indication: HIV INFECTION
     Dosage: 510 MG, QD
     Route: 048
     Dates: start: 20200623, end: 20200628
  7. TENOFOVIR DISOPROXIL FUMARATE. [Suspect]
     Active Substance: TENOFOVIR DISOPROXIL FUMARATE
     Indication: ACQUIRED IMMUNODEFICIENCY SYNDROME
     Dosage: 300 MG, QD
     Route: 048
     Dates: start: 20190507, end: 20200623
  8. GLUTATHIONE [Concomitant]
     Active Substance: GLUTATHIONE
     Dosage: UNK
     Dates: start: 202005

REACTIONS (1)
  - Hepatic function abnormal [Recovering/Resolving]
